FAERS Safety Report 24336647 (Version 2)
Quarter: 2024Q3

REPORT INFORMATION
  Report Type: Report from Study
  Country: US (occurrence: US)
  Receive Date: 20240919
  Receipt Date: 20240925
  Transmission Date: 20241017
  Serious: Yes (Hospitalization, Other)
  Sender: ABBVIE
  Company Number: US-ABBVIE-5924927

PATIENT
  Age: 70 Year
  Sex: Female
  Weight: 101.15 kg

DRUGS (5)
  1. CREON [Suspect]
     Active Substance: PANCRELIPASE AMYLASE\PANCRELIPASE LIPASE\PANCRELIPASE PROTEASE
     Indication: Pancreatic failure
     Dosage: TIME INTERVAL: 0.33333333 DAYS
     Route: 048
     Dates: start: 202404, end: 20240911
  2. ROBAXIN [Concomitant]
     Active Substance: METHOCARBAMOL
     Indication: Nervous system disorder
  3. HYDROCODONE [Concomitant]
     Active Substance: HYDROCODONE
     Indication: Back pain
  4. INSULIN NOS [Concomitant]
     Active Substance: INSULIN NOS
     Indication: Diabetes mellitus
  5. WARFARIN [Concomitant]
     Active Substance: WARFARIN
     Indication: Blood disorder

REACTIONS (7)
  - Pancreatic neoplasm [Recovered/Resolved]
  - Catheter site thrombosis [Recovered/Resolved]
  - Device related infection [Recovered/Resolved]
  - Pneumonia [Recovered/Resolved]
  - Central venous catheterisation [Recovered/Resolved]
  - Joint injury [Unknown]
  - Splenectomy [Unknown]

NARRATIVE: CASE EVENT DATE: 20240401
